FAERS Safety Report 13548051 (Version 1)
Quarter: 2017Q2

REPORT INFORMATION
  Report Type: Spontaneous
  Country: US (occurrence: US)
  Receive Date: 20170516
  Receipt Date: 20170516
  Transmission Date: 20170830
  Serious: No
  Sender: FDA-Public Use
  Company Number: US-ORPHAN EUROPE-2020788

PATIENT
  Age: 7 Year
  Sex: Male

DRUGS (1)
  1. CARBAGLU [Suspect]
     Active Substance: CARGLUMIC ACID
     Indication: FATTY ACID OXIDATION DISORDER
     Dates: start: 20151120

REACTIONS (2)
  - Off label use [Recovered/Resolved]
  - Diarrhoea [Not Recovered/Not Resolved]

NARRATIVE: CASE EVENT DATE: 20151120
